FAERS Safety Report 19176409 (Version 1)
Quarter: 2021Q2

REPORT INFORMATION
  Report Type: Spontaneous
  Country: FR (occurrence: FR)
  Receive Date: 20210424
  Receipt Date: 20210424
  Transmission Date: 20210717
  Serious: Yes (Other)
  Sender: FDA-Public Use
  Company Number: FR-LUPIN PHARMACEUTICALS INC.-2021-05404

PATIENT
  Age: 68 Year
  Sex: Male

DRUGS (6)
  1. DAPSONE. [Suspect]
     Active Substance: DAPSONE
     Indication: PEMPHIGOID
     Dosage: UNK UNK, QD UPTO150 MG DAILY
     Route: 065
  2. CLOBETASOL [Suspect]
     Active Substance: CLOBETASOL
     Indication: PEMPHIGOID
     Dosage: 30 GRAM, QD
     Route: 061
  3. RITUXIMAB. [Suspect]
     Active Substance: RITUXIMAB
     Indication: PEMPHIGOID
     Dosage: 2 GRAM EVERY 15 DAYS
     Route: 065
  4. CLOBETASOL [Suspect]
     Active Substance: CLOBETASOL
     Dosage: 10 GRAM, QD
     Route: 061
  5. DISULONE [Concomitant]
     Active Substance: DAPSONE\FERROUS OXALATE
     Indication: PEMPHIGOID
     Dosage: 100 MILLIGRAM, QD
     Route: 065
  6. DAPSONE. [Suspect]
     Active Substance: DAPSONE
     Dosage: 150 MILLIGRAM, QD
     Route: 065

REACTIONS (1)
  - Treatment failure [Unknown]
